FAERS Safety Report 4823521-6 (Version None)
Quarter: 2005Q4

REPORT INFORMATION
  Report Type: 
  Country: None (occurrence: None)
  Receive Date: 20051107
  Receipt Date: 20051020
  Transmission Date: 20060501
  Serious: Yes (Death)
  Sender: FDA-Public Use
  Company Number: US_0510123164

PATIENT
  Age: 21 Year

DRUGS (3)
  1. FLUOXETINE HCL [Suspect]
  2. ACETAMINOPHEN [Concomitant]
  3. AMITRIPTYLINE HCL [Concomitant]

REACTIONS (2)
  - COMPLETED SUICIDE [None]
  - MULTIPLE DRUG OVERDOSE [None]
